FAERS Safety Report 9044223 (Version 1)
Quarter: 2013Q1

REPORT INFORMATION
  Report Type: Spontaneous
  Country: JP (occurrence: JP)
  Receive Date: 20130130
  Receipt Date: 20130130
  Transmission Date: 20140127
  Serious: Yes (Other)
  Sender: FDA-Public Use
  Company Number: JP-JHP PHARMACEUTICALS, LLC-JHP201300022

PATIENT
  Age: 5 Day
  Sex: 0
  Weight: 2.6 kg

DRUGS (9)
  1. PITRESSIN [Suspect]
     Indication: HYPOTENSION
     Dosage: 0.2-1.0 MU/KG/MIN (0.7)
     Route: 042
  2. ANTIBIOTICS [Concomitant]
  3. RED BLOOD CELLS [Concomitant]
  4. PLATELET [Concomitant]
     Dosage: UNK, PRN
  5. PLASMA [Concomitant]
     Dosage: UNK, PRN
  6. DOBUTAMINE [Concomitant]
     Dosage: 5
     Route: 042
  7. EPINEPHRINE [Concomitant]
     Dosage: 0.3
     Route: 042
  8. MILRINONE [Concomitant]
     Dosage: 0.7
     Route: 042
  9. NITRIC OXIDE [Concomitant]

REACTIONS (4)
  - Platelet count decreased [Unknown]
  - Blood urea increased [Unknown]
  - Blood creatinine increased [Unknown]
  - Blood lactic acid increased [Recovered/Resolved]
